FAERS Safety Report 24682615 (Version 2)
Quarter: 2024Q4

REPORT INFORMATION
  Report Type: Spontaneous
  Country: US (occurrence: US)
  Receive Date: 20241130
  Receipt Date: 20241209
  Transmission Date: 20250114
  Serious: No
  Sender: ROCHE
  Company Number: US-ROCHE-10000139022

PATIENT
  Sex: Female

DRUGS (1)
  1. XOLAIR [Suspect]
     Active Substance: OMALIZUMAB
     Indication: Asthma
     Dosage: STRENGTH : 300MG/2ML
     Route: 058
     Dates: start: 202410

REACTIONS (3)
  - Product complaint [Unknown]
  - Device defective [Unknown]
  - No adverse event [Unknown]
